FAERS Safety Report 7528529-8 (Version None)
Quarter: 2011Q2

REPORT INFORMATION
  Report Type: 
  Country: None (occurrence: None)
  Receive Date: 20110607
  Receipt Date: 20100920
  Transmission Date: 20111010
  Serious: No
  Sender: FDA-Public Use
  Company Number: US-ASTRAZENECA-2010SE46211

PATIENT
  Sex: Male

DRUGS (4)
  1. DRUG USED IN DIABETES [Concomitant]
     Dosage: UNKNOWN
  2. PRILOSEC OTC [Suspect]
     Indication: DYSPEPSIA
     Route: 048
     Dates: start: 20080101
  3. BLOOD PRESSURE MEDICATION [Concomitant]
     Dosage: UNKNOWN
  4. CHOLESTEROL- AND TRIGLYCERIDE REDUCERS [Concomitant]
     Dosage: UNKNOWN

REACTIONS (4)
  - ARTHRALGIA [None]
  - INAPPROPRIATE SCHEDULE OF DRUG ADMINISTRATION [None]
  - CHILLS [None]
  - INCORRECT DRUG ADMINISTRATION DURATION [None]
